FAERS Safety Report 6892965-3 (Version None)
Quarter: 2010Q3

REPORT INFORMATION
  Report Type: 
  Country: None (occurrence: None)
  Receive Date: 20100731
  Receipt Date: 20081202
  Transmission Date: 20110219
  Serious: No
  Sender: FDA-Public Use
  Company Number: US-PFIZER INC-2008151585

PATIENT
  Sex: Female
  Weight: 70.3 kg

DRUGS (15)
  1. GABAPENTIN [Suspect]
     Indication: MULTIPLE SCLEROSIS RELAPSE
     Dosage: 100 MG, 3X/DAY
     Dates: start: 20080601, end: 20080801
  2. LYRICA [Suspect]
     Indication: MULTIPLE SCLEROSIS RELAPSE
     Dosage: 100 MG, 3X/DAY
     Route: 048
     Dates: start: 20080801
  3. DICLOFENAC DIETHYLAMINE [Concomitant]
     Dosage: UNK
  4. LASIX [Concomitant]
     Dosage: UNK
  5. KLOR-CON [Concomitant]
     Dosage: UNK
  6. TOPROL-XL [Concomitant]
     Dosage: UNK
  7. ELAVIL [Concomitant]
     Dosage: UNK
  8. DETROL LA [Concomitant]
     Dosage: UNK
  9. PROTONIX [Concomitant]
     Dosage: UNK
  10. ATIVAN [Concomitant]
     Dosage: UNK
  11. LIPITOR [Concomitant]
     Dosage: UNK
  12. VICODIN [Concomitant]
     Dosage: UNK
  13. EVISTA [Concomitant]
     Dosage: UNK
  14. CYTOTEC [Concomitant]
     Dosage: UNK
  15. MECLIZINE HYDROCHLORIDE [Concomitant]
     Dosage: UNK

REACTIONS (3)
  - DIZZINESS [None]
  - NAUSEA [None]
  - UNEVALUABLE EVENT [None]
